FAERS Safety Report 19813998 (Version 1)
Quarter: 2021Q3

REPORT INFORMATION
  Report Type: Spontaneous
  Country: US (occurrence: US)
  Receive Date: 20210908
  Receipt Date: 20210908
  Transmission Date: 20211014
  Serious: Yes (Death)
  Sender: FDA-Public Use
  Company Number: None

PATIENT
  Age: 97 Year
  Sex: Female

DRUGS (1)
  1. MELPHALAN TAB [Suspect]
     Active Substance: MELPHALAN
     Indication: PLASMA CELL MYELOMA
     Dosage: OTHER DOSE: 8?2MG TABS?OTHER FREQUENCY: Q5 DAYS Q42 D
     Route: 048
     Dates: start: 20200909

REACTIONS (1)
  - Death [None]

NARRATIVE: CASE EVENT DATE: 20210906
